FAERS Safety Report 5920506-3 (Version None)
Quarter: 2008Q4

REPORT INFORMATION
  Report Type: 
  Country: None (occurrence: None)
  Receive Date: 20081016
  Receipt Date: 20081010
  Transmission Date: 20090506
  Serious: Yes (Hospitalization)
  Sender: FDA-Public Use
  Company Number: B0539982A

PATIENT
  Age: 83 Year
  Sex: Female

DRUGS (1)
  1. ARIXTRA [Suspect]
     Indication: THROMBOSIS PROPHYLAXIS
     Dosage: 1.25MG PER DAY
     Route: 058
     Dates: start: 20080912, end: 20080923

REACTIONS (2)
  - HAEMORRHOIDAL HAEMORRHAGE [None]
  - SHOCK [None]
